FAERS Safety Report 25719750 (Version 1)
Quarter: 2025Q3

REPORT INFORMATION
  Report Type: Spontaneous
  Country: US (occurrence: US)
  Receive Date: 20250825
  Receipt Date: 20250825
  Transmission Date: 20251020
  Serious: Yes (Other)
  Sender: SANDOZ
  Company Number: US-002147023-NVSC2024US007172

PATIENT
  Sex: Male

DRUGS (4)
  1. AMOXICILLIN [Suspect]
     Active Substance: AMOXICILLIN
     Indication: Product used for unknown indication
     Route: 048
  2. ENTRESTO [Suspect]
     Active Substance: SACUBITRIL\VALSARTAN
     Indication: Product used for unknown indication
     Dosage: 1 DF, BID (0.5 DOSAGE FORM, BID)
     Route: 065
  3. ENTRESTO [Suspect]
     Active Substance: SACUBITRIL\VALSARTAN
     Route: 065
  4. ENTRESTO [Suspect]
     Active Substance: SACUBITRIL\VALSARTAN
     Route: 065

REACTIONS (9)
  - Mitral valve incompetence [Unknown]
  - Ejection fraction decreased [Unknown]
  - Hypotension [Unknown]
  - Productive cough [Unknown]
  - Throat clearing [Unknown]
  - Device related infection [Unknown]
  - Taste disorder [Unknown]
  - Wrong technique in product usage process [Unknown]
  - Product label issue [Unknown]
